FAERS Safety Report 4283638-4 (Version None)
Quarter: 2004Q1

REPORT INFORMATION
  Report Type: 
  Country: None (occurrence: None)
  Receive Date: 20040129
  Receipt Date: 20040129
  Transmission Date: 20041129
  Serious: Yes (Hospitalization)
  Sender: FDA-Public Use
  Company Number: None

PATIENT
  Age: 40 Year
  Sex: Male
  Weight: 96.5 kg

DRUGS (3)
  1. PHENYTOIN [Suspect]
     Indication: CONVULSION
     Dosage: 100 MG PO TID
     Route: 048
  2. BUTALBITAL/APAP/COD [Concomitant]
  3. PROLIXIN [Concomitant]

REACTIONS (6)
  - ABASIA [None]
  - DIZZINESS [None]
  - DRUG LEVEL INCREASED [None]
  - DYSARTHRIA [None]
  - FALL [None]
  - VISION BLURRED [None]
